FAERS Safety Report 9566699 (Version 1)
Quarter: 2013Q3

REPORT INFORMATION
  Report Type: Spontaneous
  Country: US (occurrence: US)
  Receive Date: 20130930
  Receipt Date: 20130930
  Transmission Date: 20140515
  Serious: No
  Sender: FDA-Public Use
  Company Number: US-AMGEN-USASP2012075844

PATIENT
  Age: 17 Year
  Sex: Female
  Weight: 41.72 kg

DRUGS (3)
  1. ENBREL [Suspect]
     Indication: PRODUCT USED FOR UNKNOWN INDICATION
     Dosage: 25 MG, 2 TIMES/WK
     Route: 058
  2. LYRICA [Concomitant]
     Dosage: 200 MG, UNK
  3. DEPO PROVERA [Concomitant]
     Dosage: 400/ML, UNK

REACTIONS (3)
  - Hypoaesthesia [Recovering/Resolving]
  - Urine odour abnormal [Unknown]
  - Paraesthesia [Recovering/Resolving]
